FAERS Safety Report 5663739-6 (Version None)
Quarter: 2008Q1

REPORT INFORMATION
  Report Type: 
  Country: None (occurrence: None)
  Receive Date: 20080311
  Receipt Date: 20080227
  Transmission Date: 20080703
  Serious: Yes (Death)
  Sender: FDA-Public Use
  Company Number: GXKR2008US02163

PATIENT
  Age: 40 Year
  Sex: Female

DRUGS (1)
  1. AMITRIPTLINE HCL [Suspect]

REACTIONS (6)
  - COMPLETED SUICIDE [None]
  - CONVULSION [None]
  - DRUG ABUSE [None]
  - DRUG TOXICITY [None]
  - HYPERTHERMIA [None]
  - STATUS EPILEPTICUS [None]
